FAERS Safety Report 8254008-9 (Version None)
Quarter: 2012Q2

REPORT INFORMATION
  Report Type: 
  Country: None (occurrence: None)
  Receive Date: 20120402
  Receipt Date: 20120319
  Transmission Date: 20120825
  Serious: No
  Sender: FDA-Public Use
  Company Number: US-AMGEN-USASP2012017730

PATIENT
  Age: 41 Year
  Sex: Female

DRUGS (1)
  1. ENBREL [Suspect]
     Indication: SERONEGATIVE ARTHRITIS
     Dosage: 50 MG, QWK
     Dates: start: 20110115

REACTIONS (4)
  - MALAISE [None]
  - PHARYNGITIS STREPTOCOCCAL [None]
  - NASOPHARYNGITIS [None]
  - RASH [None]
